FAERS Safety Report 5121971-4 (Version None)
Quarter: 2006Q4

REPORT INFORMATION
  Report Type: 
  Country: None (occurrence: None)
  Receive Date: 20061006
  Receipt Date: 20060901
  Transmission Date: 20070319
  Serious: Yes (Life-Threatening, Hospitalization, Other)
  Sender: FDA-Public Use
  Company Number: GB-BRISTOL-MYERS SQUIBB COMPANY-13496740

PATIENT
  Age: 81 Year
  Sex: Female
  Weight: 75 kg

DRUGS (6)
  1. PRAVASTATIN SODIUM [Suspect]
     Indication: BLOOD CHOLESTEROL INCREASED
     Dates: start: 20060701, end: 20060827
  2. LEVOTHYROXINE SODIUM [Concomitant]
     Indication: HYPOTHYROIDISM
     Route: 048
     Dates: start: 19820101
  3. ASPIRIN [Concomitant]
     Indication: CEREBROVASCULAR ACCIDENT
     Route: 048
     Dates: start: 20060101
  4. AMITRIPTYLINE HCL [Concomitant]
     Indication: PAIN
     Route: 048
     Dates: start: 19960101
  5. ATENOLOL [Concomitant]
     Indication: HYPERTENSION
     Route: 048
     Dates: start: 19890101
  6. ADCAL [Concomitant]
     Indication: MEDICAL DIET
     Route: 048
     Dates: start: 19890101

REACTIONS (2)
  - DIARRHOEA [None]
  - GASTROINTESTINAL HAEMORRHAGE [None]
